FAERS Safety Report 7391650-1 (Version None)
Quarter: 2011Q2

REPORT INFORMATION
  Report Type: 
  Country: None (occurrence: None)
  Receive Date: 20110404
  Receipt Date: 20110322
  Transmission Date: 20111010
  Serious: Yes (Death)
  Sender: FDA-Public Use
  Company Number: CA-ELI_LILLY_AND_COMPANY-CA201103006309

PATIENT
  Sex: Male

DRUGS (1)
  1. ADCIRCA [Suspect]
     Dosage: 1 DF, UNK

REACTIONS (1)
  - ROAD TRAFFIC ACCIDENT [None]
